FAERS Safety Report 11789592 (Version 2)
Quarter: 2015Q4

REPORT INFORMATION
  Report Type: Report from Study
  Country: US (occurrence: US)
  Receive Date: 20151201
  Receipt Date: 20151211
  Transmission Date: 20160305
  Serious: Yes (Other)
  Sender: FDA-Public Use
  Company Number: US-AMGEN-USANI2015125728

PATIENT
  Age: 71 Year
  Sex: Male
  Weight: 101.2 kg

DRUGS (5)
  1. PREVIDENT [Concomitant]
     Active Substance: SODIUM FLUORIDE
     Dosage: UNK
  2. DENOSUMAB [Suspect]
     Active Substance: DENOSUMAB
     Indication: PRODUCT USED FOR UNKNOWN INDICATION
     Dosage: UNK
     Route: 065
  3. CABOZANTINIB [Concomitant]
     Active Substance: CABOZANTINIB
     Dosage: UNK
  4. XGEVA [Suspect]
     Active Substance: DENOSUMAB
     Indication: METASTATIC NEOPLASM
     Dosage: 120 MG, Q3MO
     Route: 058
     Dates: start: 20121221
  5. CHLORHEXIDINE GLUCONATE. [Concomitant]
     Active Substance: CHLORHEXIDINE GLUCONATE
     Dosage: UNK

REACTIONS (1)
  - Osteonecrosis of jaw [Not Recovered/Not Resolved]

NARRATIVE: CASE EVENT DATE: 20151013
